FAERS Safety Report 7628300-2 (Version None)
Quarter: 2011Q3

REPORT INFORMATION
  Report Type: 
  Country: None (occurrence: None)
  Receive Date: 20110720
  Receipt Date: 20110720
  Transmission Date: 20111222
  Serious: Yes (Other)
  Sender: FDA-Public Use
  Company Number: None

PATIENT
  Age: 30 Year
  Sex: Female
  Weight: 61.2356 kg

DRUGS (3)
  1. FOLIC ACID [Concomitant]
  2. BCP (LOW-OGESTREL 0.3-30) [Concomitant]
  3. TOPIRAMATE [Suspect]
     Indication: EPILEPSY
     Dosage: 100MG PO QHS
     Route: 048
     Dates: start: 20100101

REACTIONS (3)
  - INSOMNIA [None]
  - NIGHT SWEATS [None]
  - PRODUCT SUBSTITUTION ISSUE [None]
